FAERS Safety Report 4475383-7 (Version None)
Quarter: 2004Q4

REPORT INFORMATION
  Report Type: 
  Country: None (occurrence: None)
  Receive Date: 20041015
  Receipt Date: 20041007
  Transmission Date: 20050328
  Serious: Yes (Disabling)
  Sender: FDA-Public Use
  Company Number: FI-ABBOTT-04P-055-0276644-00

PATIENT
  Age: 5 Year
  Sex: Female
  Weight: 24.4 kg

DRUGS (5)
  1. HUMIRA [Suspect]
     Indication: JUVENILE ARTHRITIS
     Route: 058
     Dates: start: 20040406, end: 20040504
  2. METHOTREXATE [Concomitant]
     Indication: JUVENILE ARTHRITIS
     Route: 048
     Dates: start: 20010101
  3. FOLIC ACID [Concomitant]
     Indication: VITAMIN SUPPLEMENTATION
     Route: 048
     Dates: start: 20010101
  4. NAPROXEN [Concomitant]
     Indication: ANALGESIC EFFECT
     Dosage: 25 MG/ML
     Route: 048
     Dates: start: 20010101
  5. SANASOL [Concomitant]
     Indication: VITAMIN SUPPLEMENTATION
     Route: 048
     Dates: start: 20010101

REACTIONS (5)
  - ANOREXIA [None]
  - FATIGUE [None]
  - HEADACHE [None]
  - SWELLING [None]
  - WEIGHT INCREASED [None]
